FAERS Safety Report 6529471-1 (Version None)
Quarter: 2010Q1

REPORT INFORMATION
  Report Type: 
  Country: None (occurrence: None)
  Receive Date: 20100107
  Receipt Date: 20091230
  Transmission Date: 20100710
  Serious: Yes (Hospitalization)
  Sender: FDA-Public Use
  Company Number: GB-PURDUE-GBR-2009-0005993

PATIENT
  Sex: Female

DRUGS (17)
  1. MORPHINE SULFATE [Suspect]
     Indication: DRUG USE FOR UNKNOWN INDICATION
     Dosage: 15 MG, PRN
     Route: 064
  2. TRAMADOL HCL [Suspect]
     Indication: DRUG USE FOR UNKNOWN INDICATION
     Dosage: 100 MG, Q6H
     Route: 064
  3. AMITRIPTYLINE [Suspect]
     Dosage: 25 MG, DAILY
     Route: 064
  4. FLUOXETINE [Suspect]
     Route: 064
  5. GABAPENTIN [Suspect]
     Dosage: 1.8 G, UNK
     Route: 064
  6. TRIFLUOPERAZINE [Suspect]
     Route: 064
  7. PARACETAMOL/DIHYDROCODEINE [Concomitant]
     Dosage: 1 G, Q6H
     Route: 064
  8. HEPARIN [Concomitant]
     Dosage: 5000 IU, Q12H
     Route: 064
  9. IMMUNE GLOBULIN INTRAVENOUS (HUMAN) [Concomitant]
     Dosage: 42 G, DAILY FOR 5 DAYS
     Route: 064
  10. ISOFLURANE [Concomitant]
     Route: 064
  11. METHYLPREDNISOLONE [Concomitant]
     Dosage: 1 G, DAILY
     Route: 064
  12. NITROUS OXIDE [Concomitant]
     Route: 064
  13. RANITIDINE [Concomitant]
     Dosage: 150 MG, UNK
     Route: 064
  14. ROCURONIUM BROMIDE [Concomitant]
     Dosage: 60 MG, UNK
     Route: 064
  15. SODIUM CITRATE [Concomitant]
     Dosage: 30 MG, UNK
     Route: 064
  16. THIOPENTAL SODIUM [Concomitant]
     Dosage: 450 MG, UNK
     Route: 064
  17. VITAMIN B12                        /00056201/ [Concomitant]
     Dosage: 1 MG, DAILY
     Route: 064

REACTIONS (3)
  - DRUG WITHDRAWAL SYNDROME [None]
  - INFANTILE APNOEIC ATTACK [None]
  - MATERNAL DRUGS AFFECTING FOETUS [None]
